FAERS Safety Report 5133021-4 (Version None)
Quarter: 2006Q4

REPORT INFORMATION
  Report Type: 
  Country: None (occurrence: None)
  Receive Date: 20061023
  Receipt Date: 20061019
  Transmission Date: 20070319
  Serious: Yes (Hospitalization)
  Sender: FDA-Public Use
  Company Number: AU-BRISTOL-MYERS SQUIBB COMPANY-13546643

PATIENT
  Age: 68 Year
  Sex: Male

DRUGS (4)
  1. ABILIFY [Suspect]
     Indication: SCHIZOPHRENIA
     Route: 048
  2. GALANTAMINE HYDROBROMIDE [Concomitant]
     Indication: PSYCHOTIC DISORDER
     Route: 048
  3. LEVODOPA + BENSERAZIDE [Concomitant]
     Indication: PARKINSON'S DISEASE
     Route: 048
  4. TRAMADOL HCL [Concomitant]
     Indication: SCHIZOPHRENIA
     Route: 048

REACTIONS (6)
  - AGGRESSION [None]
  - DISORIENTATION [None]
  - HALLUCINATION [None]
  - INCOHERENT [None]
  - NEUROLEPTIC MALIGNANT SYNDROME [None]
  - TREMOR [None]
